FAERS Safety Report 4342351-5 (Version None)
Quarter: 2004Q2

REPORT INFORMATION
  Report Type: 
  Country: None (occurrence: None)
  Receive Date: 20040416
  Receipt Date: 20040222
  Transmission Date: 20050107
  Serious: Yes (Hospitalization, Other)
  Sender: FDA-Public Use
  Company Number: KII-2004-0009451

PATIENT
  Age: 59 Year
  Sex: Male

DRUGS (1)
  1. OXYCONTIN [Suspect]
     Indication: DRUG USE FOR UNKNOWN INDICATION

REACTIONS (7)
  - BLOOD PRESSURE DIASTOLIC DECREASED [None]
  - DYSARTHRIA [None]
  - HEART RATE INCREASED [None]
  - OVERDOSE [None]
  - OXYGEN SATURATION DECREASED [None]
  - PH BODY FLUID DECREASED [None]
  - SOMNOLENCE [None]
